FAERS Safety Report 4465536-6 (Version None)
Quarter: 2004Q4

REPORT INFORMATION
  Report Type: 
  Country: None (occurrence: None)
  Receive Date: 20041004
  Receipt Date: 20040420
  Transmission Date: 20050328
  Serious: No
  Sender: FDA-Public Use
  Company Number: US-GLAXOSMITHKLINE-A0507686A

PATIENT
  Age: 46 Year
  Sex: Female

DRUGS (2)
  1. IMITREX [Suspect]
     Indication: MIGRAINE
     Dosage: 20MG SINGLE DOSE
     Route: 045
     Dates: start: 20040101, end: 20040101
  2. NO CONCURRENT MEDICATION [Concomitant]

REACTIONS (4)
  - HYPERACUSIS [None]
  - NAUSEA [None]
  - PHOTOSENSITIVITY REACTION [None]
  - VOMITING [None]
